FAERS Safety Report 6805054-0 (Version None)
Quarter: 2010Q2

REPORT INFORMATION
  Report Type: 
  Country: None (occurrence: None)
  Receive Date: 20100628
  Receipt Date: 20070806
  Transmission Date: 20101027
  Serious: No
  Sender: FDA-Public Use
  Company Number: US-PFIZER INC-2007065106

PATIENT
  Sex: Male
  Weight: 114 kg

DRUGS (2)
  1. SUTENT [Suspect]
     Indication: RENAL CELL CARCINOMA
     Route: 048
     Dates: start: 20070611
  2. ANTIHYPERTENSIVES [Concomitant]

REACTIONS (1)
  - BLISTER [None]
